FAERS Safety Report 5315343-7 (Version None)
Quarter: 2007Q2

REPORT INFORMATION
  Report Type: 
  Country: None (occurrence: None)
  Receive Date: 20070427
  Receipt Date: 20070419
  Transmission Date: 20071010
  Serious: Yes (Hospitalization)
  Sender: FDA-Public Use
  Company Number: 2007AP000433

PATIENT
  Age: 45 Year
  Sex: Female

DRUGS (2)
  1. PAROXETINE HCL [Suspect]
     Indication: DEPRESSION
     Dosage: 30 MG;QD;
     Dates: end: 20050101
  2. LEVOTHYROXINE SODIUM [Concomitant]

REACTIONS (7)
  - CEREBRAL INFARCTION [None]
  - CEREBRAL VASOCONSTRICTION [None]
  - CEREBROVASCULAR SPASM [None]
  - DRUG SCREEN POSITIVE [None]
  - HEMIPLEGIA [None]
  - VASCULITIS CEREBRAL [None]
  - VISUAL FIELD DEFECT [None]
